FAERS Safety Report 12901773 (Version 2)
Quarter: 2016Q4

REPORT INFORMATION
  Report Type: Spontaneous
  Country: JP (occurrence: JP)
  Receive Date: 20161102
  Receipt Date: 20161116
  Transmission Date: 20170207
  Serious: Yes (Hospitalization, Disabling, Other)
  Sender: FDA-Public Use
  Company Number: JP-ROCHE-1849634

PATIENT
  Age: 8 Decade
  Sex: Female

DRUGS (1)
  1. XELODA [Suspect]
     Active Substance: CAPECITABINE
     Indication: BREAST CANCER
     Dosage: MOST RECENT DOSE RECEIVED ON /OCT/2016
     Route: 048
     Dates: start: 201603

REACTIONS (2)
  - Metastases to central nervous system [Unknown]
  - Blindness [Unknown]

NARRATIVE: CASE EVENT DATE: 20161019
